FAERS Safety Report 5064318-4 (Version None)
Quarter: 2006Q3

REPORT INFORMATION
  Report Type: 
  Country: None (occurrence: None)
  Receive Date: 20060725
  Receipt Date: 20060713
  Transmission Date: 20061208
  Serious: Yes (Disabling)
  Sender: FDA-Public Use
  Company Number: HQWYE016117JUL06

PATIENT
  Age: 20 Year
  Sex: Female
  Weight: 57.2 kg

DRUGS (8)
  1. EFFEXOR XR [Suspect]
     Indication: ANXIETY
     Dosage: 75  MG 2X PER 1 DAY, ORAL; 150 MG 1X PER 1 DAY, ORAL
     Route: 048
     Dates: start: 20010901, end: 20060420
  2. EFFEXOR XR [Suspect]
     Indication: MAJOR DEPRESSION
     Dosage: 75  MG 2X PER 1 DAY, ORAL; 150 MG 1X PER 1 DAY, ORAL
     Route: 048
     Dates: start: 20010901, end: 20060420
  3. EFFEXOR XR [Suspect]
     Indication: OBSESSIVE-COMPULSIVE DISORDER
     Dosage: 75  MG 2X PER 1 DAY, ORAL; 150 MG 1X PER 1 DAY, ORAL
     Route: 048
     Dates: start: 20010901, end: 20060420
  4. EFFEXOR XR [Suspect]
     Indication: ANXIETY
     Dosage: 75  MG 2X PER 1 DAY, ORAL; 150 MG 1X PER 1 DAY, ORAL
     Route: 048
     Dates: start: 20060420, end: 20060621
  5. EFFEXOR XR [Suspect]
     Indication: MAJOR DEPRESSION
     Dosage: 75  MG 2X PER 1 DAY, ORAL; 150 MG 1X PER 1 DAY, ORAL
     Route: 048
     Dates: start: 20060420, end: 20060621
  6. EFFEXOR XR [Suspect]
     Indication: OBSESSIVE-COMPULSIVE DISORDER
     Dosage: 75  MG 2X PER 1 DAY, ORAL; 150 MG 1X PER 1 DAY, ORAL
     Route: 048
     Dates: start: 20060420, end: 20060621
  7. ADDERALL 10 [Concomitant]
  8. FLUOXETINE [Concomitant]

REACTIONS (4)
  - ANXIETY [None]
  - CONDITION AGGRAVATED [None]
  - DRUG DOSE OMISSION [None]
  - DRUG WITHDRAWAL SYNDROME [None]
